FAERS Safety Report 7524503-6 (Version None)
Quarter: 2011Q2

REPORT INFORMATION
  Report Type: 
  Country: None (occurrence: None)
  Receive Date: 20110525
  Receipt Date: 20110510
  Transmission Date: 20111010
  Serious: Yes (Death, Hospitalization)
  Sender: FDA-Public Use
  Company Number: 2011MA005763

PATIENT
  Age: 77 Year
  Sex: Male

DRUGS (1)
  1. EPIRUBICIN HYDROCHLORIDE [Suspect]
     Indication: HEPATIC NEOPLASM MALIGNANT
     Dosage: 300 MG
     Dates: start: 20070201, end: 20090201

REACTIONS (9)
  - HYPOTENSION [None]
  - SEPSIS [None]
  - RENAL IMPAIRMENT [None]
  - ACUTE PROMYELOCYTIC LEUKAEMIA [None]
  - LEUKOCYTOSIS [None]
  - PROCALCITONIN INCREASED [None]
  - CIRCULATORY COLLAPSE [None]
  - FIBRIN D DIMER INCREASED [None]
  - BLOOD FIBRINOGEN DECREASED [None]
